FAERS Safety Report 15546703 (Version 2)
Quarter: 2018Q4

REPORT INFORMATION
  Report Type: Spontaneous
  Country: CH (occurrence: CH)
  Receive Date: 20181024
  Receipt Date: 20181101
  Transmission Date: 20190205
  Serious: Yes (Life-Threatening, Other)
  Sender: FDA-Public Use
  Company Number: CH-PFIZER INC-2018432258

PATIENT
  Age: 46 Year
  Sex: Male

DRUGS (1)
  1. VENLAFAXINE HCL [Suspect]
     Active Substance: VENLAFAXINE HYDROCHLORIDE
     Dosage: 5250 MG, UNK

REACTIONS (4)
  - Tachycardia [Recovered/Resolved]
  - Circulatory collapse [Recovered/Resolved]
  - Ejection fraction decreased [Recovered/Resolved]
  - Toxicity to various agents [Recovered/Resolved]
